FAERS Safety Report 14660485 (Version 2)
Quarter: 2018Q1

REPORT INFORMATION
  Report Type: Spontaneous
  Country: KZ (occurrence: KZ)
  Receive Date: 20180320
  Receipt Date: 20180326
  Transmission Date: 20180509
  Serious: Yes (Life-Threatening, Other)
  Sender: FDA-Public Use
  Company Number: KZ-GLAXOSMITHKLINE-KZ2018GSK045923

PATIENT
  Age: 4 Year
  Sex: Female
  Weight: 26 kg

DRUGS (1)
  1. ZINNAT [Suspect]
     Active Substance: CEFUROXIME AXETIL
     Indication: PRODUCT USED FOR UNKNOWN INDICATION
     Dosage: 5 DF, BID
     Dates: start: 20180316

REACTIONS (3)
  - Loss of consciousness [Recovered/Resolved]
  - Vomiting [Unknown]
  - Product preparation error [Unknown]

NARRATIVE: CASE EVENT DATE: 20180316
